FAERS Safety Report 24779880 (Version 1)
Quarter: 2024Q4

REPORT INFORMATION
  Report Type: Spontaneous
  Country: US (occurrence: US)
  Receive Date: 20241226
  Receipt Date: 20241226
  Transmission Date: 20250115
  Serious: No
  Sender: LEO PHARM
  Company Number: US-LEO Pharma-376293

PATIENT
  Age: 43 Year
  Sex: Female

DRUGS (4)
  1. ADBRY [Suspect]
     Active Substance: TRALOKINUMAB-LDRM
     Indication: Dermatitis atopic
     Dosage: TREATMENT IS ONGOING
     Route: 058
     Dates: start: 202407
  2. ADBRY [Suspect]
     Active Substance: TRALOKINUMAB-LDRM
     Indication: Psoriasis
     Dosage: TREATMENT IS ONGOING
     Route: 058
     Dates: start: 202407
  3. ADBRY [Suspect]
     Active Substance: TRALOKINUMAB-LDRM
     Indication: Rheumatoid arthritis
     Dosage: TREATMENT IS ONGOING
     Route: 058
     Dates: start: 202407
  4. ADBRY [Suspect]
     Active Substance: TRALOKINUMAB-LDRM
     Indication: Palmoplantar pustulosis
     Dosage: TREATMENT IS ONGOING
     Route: 058
     Dates: start: 202407

REACTIONS (1)
  - Dermatitis atopic [Unknown]
